FAERS Safety Report 9683417 (Version 2)
Quarter: 2013Q4

REPORT INFORMATION
  Report Type: Report from Study
  Country: JP (occurrence: JP)
  Receive Date: 20131112
  Receipt Date: 20131118
  Transmission Date: 20140711
  Serious: Yes (Death)
  Sender: FDA-Public Use
  Company Number: JP-NOVOPROD-392063

PATIENT
  Age: 70 Year
  Sex: Male

DRUGS (4)
  1. NOVONORM 0.25 MG TABLET [Suspect]
     Indication: TYPE 2 DIABETES MELLITUS
     Dosage: 0.25 MG, TID
     Dates: start: 201308, end: 201310
  2. NOVONORM 0.25 MG TABLET [Suspect]
     Dosage: 0.5 MG, TID
     Dates: start: 201310
  3. TRAZENTA [Concomitant]
     Indication: PRODUCT USED FOR UNKNOWN INDICATION
  4. AMARYL [Concomitant]
     Indication: PRODUCT USED FOR UNKNOWN INDICATION
     Dosage: UNK

REACTIONS (1)
  - Sudden death [Fatal]
